FAERS Safety Report 18622859 (Version 2)
Quarter: 2021Q1

REPORT INFORMATION
  Report Type: Spontaneous
  Country: US (occurrence: US)
  Receive Date: 20201216
  Receipt Date: 20210310
  Transmission Date: 20210419
  Serious: No
  Sender: FDA-Public Use
  Company Number: US-ASTRAZENECA-2020SF52328

PATIENT
  Sex: Male
  Weight: 69 kg

DRUGS (3)
  1. LYNPARZA [Suspect]
     Active Substance: OLAPARIB
     Route: 048
  2. LYNPARZA [Suspect]
     Active Substance: OLAPARIB
     Dosage: 1 DF, TWICE DAILY
     Route: 048
     Dates: start: 202010
  3. XTANDI [Suspect]
     Active Substance: ENZALUTAMIDE
     Indication: PROSTATE CANCER
     Route: 048

REACTIONS (7)
  - Dysgeusia [Recovering/Resolving]
  - Fatigue [Unknown]
  - Bone pain [Recovering/Resolving]
  - Asthenia [Unknown]
  - Taste disorder [Unknown]
  - Nausea [Unknown]
  - Feeding disorder [Recovering/Resolving]
